FAERS Safety Report 17669802 (Version 1)
Quarter: 2020Q2

REPORT INFORMATION
  Report Type: Spontaneous
  Country: US (occurrence: US)
  Receive Date: 20200414
  Receipt Date: 20200414
  Transmission Date: 20200713
  Serious: No
  Sender: FDA-Public Use
  Company Number: None

PATIENT
  Age: 67 Year
  Sex: Male
  Weight: 95.13 kg

DRUGS (8)
  1. ASPIRIN 81MG [Concomitant]
     Active Substance: ASPIRIN
  2. MAGNESIUM OXIDE 400MG [Concomitant]
     Active Substance: MAGNESIUM OXIDE
  3. ONDANSETRON 8MG [Concomitant]
     Active Substance: ONDANSETRON
  4. MIRALAX [Concomitant]
     Active Substance: POLYETHYLENE GLYCOL 3350
  5. SIMVASTATIN 20MG [Concomitant]
     Active Substance: SIMVASTATIN
  6. GABAPENTIN 100MG [Concomitant]
     Active Substance: GABAPENTIN
  7. CAPECITABINE. [Suspect]
     Active Substance: CAPECITABINE
     Indication: RECTAL CANCER
     Route: 048
     Dates: start: 20200120
  8. FERROUS SULFATE 324MG [Concomitant]

REACTIONS (1)
  - Disease progression [None]

NARRATIVE: CASE EVENT DATE: 20200414
